FAERS Safety Report 9656053 (Version 3)
Quarter: 2013Q4

REPORT INFORMATION
  Report Type: Spontaneous
  Country: US (occurrence: US)
  Receive Date: 20131030
  Receipt Date: 20131128
  Transmission Date: 20140711
  Serious: Yes (Hospitalization)
  Sender: FDA-Public Use
  Company Number: US-SA-2013SA109314

PATIENT
  Age: 51 Year
  Sex: Female

DRUGS (4)
  1. LANTUS SOLOSTAR [Suspect]
     Dosage: DOSE:17 UNIT(S)
     Route: 058
  2. LANTUS SOLOSTAR [Suspect]
     Dosage: DOSE:17 UNIT(S)
     Route: 058
  3. SOLOSTAR [Concomitant]
  4. SOLOSTAR [Concomitant]

REACTIONS (1)
  - Fungal infection [Unknown]
